FAERS Safety Report 13440950 (Version 3)
Quarter: 2018Q3

REPORT INFORMATION
  Report Type: Spontaneous
  Country: US (occurrence: US)
  Receive Date: 20170413
  Receipt Date: 20180824
  Transmission Date: 20181010
  Serious: No
  Sender: FDA-Public Use
  Company Number: US-ASTRAZENECA-2017SE36226

PATIENT
  Age: 61 Year
  Sex: Female
  Weight: 108.9 kg

DRUGS (1)
  1. BYETTA [Suspect]
     Active Substance: EXENATIDE
     Indication: TYPE 2 DIABETES MELLITUS
     Dosage: 250 MCG/ 2.4 ML TWO TIMES A DAY
     Route: 058
     Dates: start: 2016

REACTIONS (10)
  - Hypertension [Unknown]
  - Depression [Unknown]
  - Thyroid disorder [Unknown]
  - Overweight [Unknown]
  - Intentional product misuse [Unknown]
  - Abdominal discomfort [Recovered/Resolved]
  - Migraine [Unknown]
  - Nausea [Unknown]
  - Device issue [Unknown]
  - Nervousness [Recovered/Resolved]

NARRATIVE: CASE EVENT DATE: 2016
